FAERS Safety Report 9994570 (Version 1)
Quarter: 2014Q1

REPORT INFORMATION
  Report Type: Spontaneous
  Country: US (occurrence: US)
  Receive Date: 20140311
  Receipt Date: 20140311
  Transmission Date: 20141002
  Serious: No
  Sender: FDA-Public Use
  Company Number: US-009507513-1403USA004811

PATIENT
  Age: 22 Year
  Sex: Female

DRUGS (1)
  1. NEXPLANON [Suspect]
     Indication: CONTRACEPTION
     Dosage: 1 ROD/THREE YEARS
     Route: 059
     Dates: start: 20140303

REACTIONS (3)
  - Implant site bruising [Not Recovered/Not Resolved]
  - Implant site pain [Not Recovered/Not Resolved]
  - Implant site pain [Not Recovered/Not Resolved]
